FAERS Safety Report 6846598-5 (Version None)
Quarter: 2010Q3

REPORT INFORMATION
  Report Type: 
  Country: None (occurrence: None)
  Receive Date: 20100715
  Receipt Date: 20070920
  Transmission Date: 20110219
  Serious: No
  Sender: FDA-Public Use
  Company Number: US-PFIZER INC-2007079133

PATIENT
  Sex: Male
  Weight: 61.7 kg

DRUGS (7)
  1. CHANTIX [Suspect]
     Indication: SMOKING CESSATION THERAPY
     Dates: start: 20070914
  2. SPIRIVA [Concomitant]
  3. ALBUTEROL [Concomitant]
  4. ADVAIR DISKUS 100/50 [Concomitant]
  5. ANTIBIOTICS [Concomitant]
  6. ALL OTHER THERAPEUTIC PRODUCTS [Concomitant]
  7. CYCLOBENZAPRINE [Concomitant]

REACTIONS (1)
  - ABNORMAL DREAMS [None]
